FAERS Safety Report 19650281 (Version 1)
Quarter: 2021Q3

REPORT INFORMATION
  Report Type: Spontaneous
  Country: US (occurrence: US)
  Receive Date: 20210802
  Receipt Date: 20210802
  Transmission Date: 20211014
  Serious: Yes (Other)
  Sender: FDA-Public Use
  Company Number: NVSC2021US170919

PATIENT
  Age: 49 Year
  Sex: Female

DRUGS (2)
  1. RANITIDINE. [Suspect]
     Active Substance: RANITIDINE
     Indication: DYSPEPSIA
     Dosage: 150 MG, 2 TO 3 TIMES A DAY
     Route: 065
     Dates: end: 201910
  2. RANITIDINE. [Suspect]
     Active Substance: RANITIDINE
     Indication: DYSPEPSIA
     Dosage: 150 MG, 2 TO 3 TIMES A DAY
     Route: 065
     Dates: end: 201910

REACTIONS (5)
  - Hiatus hernia [Unknown]
  - Colorectal cancer [Recovering/Resolving]
  - Incorrect dose administered [Unknown]
  - Barrett^s oesophagus [Unknown]
  - Injury [Unknown]

NARRATIVE: CASE EVENT DATE: 20080815
